FAERS Safety Report 18448115 (Version 2)
Quarter: 2020Q4

REPORT INFORMATION
  Report Type: Spontaneous
  Country: CN (occurrence: CN)
  Receive Date: 20201031
  Receipt Date: 20201125
  Transmission Date: 20210114
  Serious: Yes (Hospitalization, Other)
  Sender: FDA-Public Use
  Company Number: CN-LUPIN PHARMACEUTICALS INC.-2020-08026

PATIENT
  Age: 26 Year
  Sex: Female

DRUGS (7)
  1. AZITHROMYCIN ANHYDROUS. [Suspect]
     Active Substance: AZITHROMYCIN ANHYDROUS
     Indication: COVID-19
     Dosage: UNK
     Route: 065
  2. GLUTATHIONE [Suspect]
     Active Substance: GLUTATHIONE
     Indication: HEPATIC FUNCTION ABNORMAL
     Dosage: UNK
     Route: 065
  3. CEFDINIR. [Suspect]
     Active Substance: CEFDINIR
     Indication: COVID-19
     Dosage: UNK
     Route: 065
  4. POLYENE PHOSPHATIDYLCHOLINE [Suspect]
     Active Substance: PHOSPHOLIPID
     Indication: HEPATIC FUNCTION ABNORMAL
     Dosage: UNK
     Route: 048
  5. OSELTAMIVIR [Suspect]
     Active Substance: OSELTAMIVIR
     Indication: COVID-19
     Dosage: UNK
     Route: 065
  6. INTERFERON ALFA-2B RECOMBINANT [Suspect]
     Active Substance: INTERFERON ALFA-2B
     Indication: COVID-19
     Dosage: UNK
     Route: 065
  7. ARBIDOL [Suspect]
     Active Substance: UMIFENOVIR
     Indication: COVID-19
     Dosage: UNK
     Route: 065

REACTIONS (4)
  - Off label use [Unknown]
  - Maternal exposure during pregnancy [Unknown]
  - Condition aggravated [Recovered/Resolved]
  - Hepatic function abnormal [Recovered/Resolved]
